FAERS Safety Report 7513635-4 (Version None)
Quarter: 2011Q2

REPORT INFORMATION
  Report Type: 
  Country: None (occurrence: None)
  Receive Date: 20110531
  Receipt Date: 20110516
  Transmission Date: 20111010
  Serious: Yes (Hospitalization, Other)
  Sender: FDA-Public Use
  Company Number: US-BAYER-201036572NA

PATIENT
  Age: 48 Year
  Sex: Female
  Weight: 67 kg

DRUGS (22)
  1. GEODON [Concomitant]
     Indication: DEPRESSION
     Dosage: UNK
     Dates: start: 20040101
  2. GEODON [Concomitant]
     Indication: ANXIETY
  3. LEXAPRO [Concomitant]
     Indication: DEPRESSION
     Dosage: UNK
     Dates: start: 20020101
  4. CHLORDIAZEPOXIDE [Concomitant]
     Indication: ANXIETY
     Dosage: UNK
     Dates: start: 20080101, end: 20090101
  5. HERBALIFE PRODUCTS [Concomitant]
     Dosage: UNK
     Dates: start: 20080816, end: 20080826
  6. SEROQUEL [Concomitant]
     Indication: ANXIETY
  7. WELLBUTRIN [Concomitant]
     Indication: DEPRESSION
  8. LEXAPRO [Concomitant]
     Indication: ANXIETY
  9. BUSPIRONE HCL [Concomitant]
     Indication: ANXIETY
     Dosage: UNK
     Dates: start: 20020101, end: 20070101
  10. LIBRIUM [Concomitant]
     Indication: ANXIETY
     Dosage: UNK
     Dates: start: 20090101, end: 20100101
  11. EFFEXOR [Concomitant]
     Indication: ANTIDEPRESSANT THERAPY
     Dosage: UNK
     Dates: start: 20030101, end: 20050101
  12. VITAMIN D [Concomitant]
     Dosage: UNK
     Dates: start: 20080816, end: 20080826
  13. KLONOPIN [Concomitant]
     Indication: DEPRESSION
     Dosage: UNK
     Dates: start: 20070101, end: 20100101
  14. CELEXA [Concomitant]
     Indication: ANTIDEPRESSANT THERAPY
     Dosage: UNK
     Dates: start: 20010101
  15. DAILY VITAMINS [Concomitant]
     Dosage: UNK UNK, QD
     Dates: start: 20080816, end: 20080826
  16. ANTIBIOTICS [Concomitant]
     Dosage: UNK
     Dates: start: 20010101, end: 20090101
  17. CLONAZEPAM [Concomitant]
     Indication: ANXIETY
     Dosage: UNK
     Dates: start: 20070101, end: 20100101
  18. NUVIGIL [Concomitant]
     Indication: INSOMNIA
     Dosage: UNK
     Dates: start: 20080101, end: 20100101
  19. YAZ [Suspect]
     Indication: PRODUCT USED FOR UNKNOWN INDICATION
     Route: 048
     Dates: start: 20080101, end: 20080826
  20. SYNTHROID [Concomitant]
     Indication: HYPOTHYROIDISM
     Dosage: UNK
     Dates: start: 20090101, end: 20100101
  21. SEROQUEL [Concomitant]
     Indication: DEPRESSION
     Dosage: UNK
     Dates: start: 20040101
  22. KLONOPIN [Concomitant]
     Indication: ANXIETY

REACTIONS (5)
  - PULMONARY EMBOLISM [None]
  - PAIN [None]
  - PLEURISY [None]
  - DYSPNOEA [None]
  - PULMONARY INFARCTION [None]
